FAERS Safety Report 4511743-3 (Version None)
Quarter: 2004Q4

REPORT INFORMATION
  Report Type: 
  Country: None (occurrence: None)
  Receive Date: 20041123
  Receipt Date: 20041123
  Transmission Date: 20050328
  Serious: Yes (Hospitalization)
  Sender: FDA-Public Use
  Company Number: None

PATIENT
  Age: 54 Year
  Sex: Male
  Weight: 113.9 kg

DRUGS (3)
  1. ISONIAZID [Suspect]
     Indication: TUBERCULIN TEST POSITIVE
     Dosage: ORAL
     Route: 048
     Dates: start: 20040811
  2. MEVACOR [Suspect]
  3. METFORMIN HCL [Suspect]
     Dates: start: 20040818

REACTIONS (1)
  - HEPATITIS [None]
